FAERS Safety Report 10359622 (Version 1)
Quarter: 2014Q3

REPORT INFORMATION
  Report Type: Spontaneous
  Country: US (occurrence: None)
  Receive Date: 20140801
  Receipt Date: 20140801
  Transmission Date: 20150326
  Serious: Yes (Other)
  Sender: FDA-Public Use
  Company Number: None

PATIENT
  Age: 26 Year
  Sex: Female

DRUGS (1)
  1. PPD DISPOSABLE [Suspect]
     Active Substance: TUBERCULIN PURIFIED PROTEIN DERIVATIVE
     Dosage: LOT NUMBER C4546AA?INTRADEERMKAL, LEFT ARM.
     Dates: start: 20140714

REACTIONS (6)
  - Injection site erythema [None]
  - Injection site oedema [None]
  - Throat tightness [None]
  - Injection site pain [None]
  - Pruritus generalised [None]
  - Lip swelling [None]

NARRATIVE: CASE EVENT DATE: 20140714
